FAERS Safety Report 5857243-X (Version None)
Quarter: 2008Q3

REPORT INFORMATION
  Report Type: 
  Country: None (occurrence: None)
  Receive Date: 20080821
  Receipt Date: 20080808
  Transmission Date: 20090109
  Serious: Yes (Hospitalization)
  Sender: FDA-Public Use
  Company Number: 20080233

PATIENT
  Age: 85 Year
  Sex: Female

DRUGS (15)
  1. VENOFER [Suspect]
     Indication: ANAEMIA
     Dosage: 200 MG, 3 IN 1 WK , INTRAVENOUS
     Route: 042
     Dates: start: 20080130, end: 20080211
  2. LASIX [Suspect]
     Indication: HYPERTENSION
     Dosage: 20 MG, 1 IN 1 DAY ORAL
     Route: 048
     Dates: end: 20080211
  3. PERINDOPRIL ERBUMINE [Suspect]
     Indication: HYPERTENSION
     Dosage: 4 MG, 1 IN 1 DAY ORAL
     Route: 048
     Dates: end: 20080210
  4. FOLIC ACID [Suspect]
     Indication: ANAEMIA
     Dosage: 1 DOSAGE FORM, 1 IN 1
     Dates: start: 20080130, end: 20080214
  5. PROPRANOLOL [Concomitant]
  6. ROCEPHIN [Concomitant]
  7. CRESTOR (ROSUVASTATINE) [Concomitant]
  8. ZOLPIDEM TARTRATE [Concomitant]
  9. TRANXENE (CLORAZEPAM) [Concomitant]
  10. ASCORBIC ACID [Concomitant]
  11. TARDYFERON (IRON SULFATE) [Concomitant]
  12. POTASSIUM CHLORIDE [Concomitant]
  13. LANTUS [Concomitant]
  14. RED BLOOD CELLS [Concomitant]
  15. AUGMENTIN '200' [Concomitant]

REACTIONS (9)
  - ANAEMIA [None]
  - BACTERIAL PYELONEPHRITIS [None]
  - BRONCHITIS [None]
  - DRUG INEFFECTIVE [None]
  - ESCHERICHIA INFECTION [None]
  - LEUKOPENIA [None]
  - PLASMACYTOSIS [None]
  - SUPERINFECTION [None]
  - THROMBOCYTOPENIA [None]
